FAERS Safety Report 19399231 (Version 2)
Quarter: 2025Q2

REPORT INFORMATION
  Report Type: Spontaneous
  Country: US (occurrence: US)
  Receive Date: 20210610
  Receipt Date: 20250626
  Transmission Date: 20250717
  Serious: Yes (Hospitalization)
  Sender: AUROBINDO
  Company Number: US-MYLANLABS-2021M1033559

PATIENT
  Age: 13 Year
  Sex: Female

DRUGS (12)
  1. CLOBETASOL PROPIONATE [Suspect]
     Active Substance: CLOBETASOL PROPIONATE
     Indication: Genital labial adhesions
     Route: 061
  2. CLOBETASOL PROPIONATE [Suspect]
     Active Substance: CLOBETASOL PROPIONATE
     Indication: Steroid therapy
  3. PREDNISONE [Suspect]
     Active Substance: PREDNISONE
     Indication: Genital ulceration
     Dosage: 45 MILLIGRAM, ONCE A DAY
     Route: 048
  4. PREDNISONE [Suspect]
     Active Substance: PREDNISONE
     Indication: Vulval oedema
     Dosage: 40 MILLIGRAM, ONCE A DAY
     Route: 048
  5. PREDNISONE [Suspect]
     Active Substance: PREDNISONE
     Indication: Steroid therapy
     Dosage: 20 MILLIGRAM, ONCE A DAY
     Route: 048
  6. PREDNISONE [Suspect]
     Active Substance: PREDNISONE
     Dosage: 10 MILLIGRAM, ONCE A DAY
     Route: 048
  7. LIDOCAINE [Concomitant]
     Active Substance: LIDOCAINE
     Indication: Genital pain
     Route: 061
  8. SOMATROPIN [Concomitant]
     Active Substance: SOMATROPIN
     Indication: Product used for unknown indication
     Route: 065
  9. PYRIDIUM [Concomitant]
     Active Substance: PHENAZOPYRIDINE
     Indication: Dysuria
     Route: 065
  10. LIDOCAINE [Concomitant]
     Active Substance: LIDOCAINE
     Indication: Genital pain
     Route: 061
  11. Benzocaine [Concomitant]
     Indication: Genital pain
     Route: 065
  12. COLCHICINE [Concomitant]
     Active Substance: COLCHICINE
     Indication: Product used for unknown indication
     Route: 065

REACTIONS (1)
  - Drug ineffective [Unknown]
